FAERS Safety Report 10082747 (Version 1)
Quarter: 2014Q2

REPORT INFORMATION
  Report Type: Spontaneous
  Country: US (occurrence: US)
  Receive Date: 20140416
  Receipt Date: 20140416
  Transmission Date: 20141212
  Serious: Yes (Other)
  Sender: FDA-Public Use
  Company Number: US-AMGEN-USASP2014025803

PATIENT
  Sex: Female

DRUGS (3)
  1. XGEVA [Suspect]
     Indication: METASTASES TO BONE
     Dosage: UNK
     Route: 065
  2. FASLODEX                           /01285001/ [Concomitant]
  3. HERCEPTIN [Concomitant]

REACTIONS (3)
  - Cardiac failure congestive [Unknown]
  - Metastases to bone [Unknown]
  - Pain in extremity [Not Recovered/Not Resolved]
